FAERS Safety Report 8058348-8 (Version None)
Quarter: 2012Q1

REPORT INFORMATION
  Report Type: 
  Country: None (occurrence: None)
  Receive Date: 20120120
  Receipt Date: 20120110
  Transmission Date: 20120608
  Serious: Yes (Other)
  Sender: FDA-Public Use
  Company Number: US-ELI_LILLY_AND_COMPANY-US201201003750

PATIENT
  Age: 57 Year
  Sex: Female

DRUGS (2)
  1. CYMBALTA [Suspect]
     Dosage: 60 MG, QD
     Dates: start: 20110901
  2. CYMBALTA [Suspect]
     Indication: DEPRESSION
     Dosage: 60 MG, BID

REACTIONS (11)
  - NIGHT SWEATS [None]
  - MALAISE [None]
  - SCAB [None]
  - HYSTERECTOMY [None]
  - DRUG WITHDRAWAL SYNDROME [None]
  - DRUG INEFFECTIVE [None]
  - DRUG WITHDRAWAL HEADACHE [None]
  - HEADACHE [None]
  - MEMORY IMPAIRMENT [None]
  - HYPERHIDROSIS [None]
  - MENTAL DISORDER [None]
